FAERS Safety Report 4636374-6 (Version None)
Quarter: 2005Q2

REPORT INFORMATION
  Report Type: 
  Country: None (occurrence: None)
  Receive Date: 20050415
  Receipt Date: 20041108
  Transmission Date: 20051028
  Serious: Yes (Other)
  Sender: FDA-Public Use
  Company Number: DE-ROCHE-387663

PATIENT
  Age: 59 Year
  Sex: Male

DRUGS (1)
  1. ROFERON-A [Suspect]
     Indication: MALIGNANT MELANOMA
     Dosage: STRENGTH REPORTED AS 9 MIO IU/0.5 ML. DRUG WAS TAKEN IN EVENING.
     Route: 058
     Dates: start: 20030129, end: 20050108

REACTIONS (7)
  - CARDIAC FIBRILLATION [None]
  - CHILLS [None]
  - FEELING COLD [None]
  - PHARMACEUTICAL PRODUCT COMPLAINT [None]
  - PYREXIA [None]
  - TACHYCARDIA [None]
  - TREMOR [None]
